FAERS Safety Report 9650833 (Version 2)
Quarter: 2013Q4

REPORT INFORMATION
  Report Type: Spontaneous
  Country: IT (occurrence: IT)
  Receive Date: 20131029
  Receipt Date: 20131219
  Transmission Date: 20140711
  Serious: Yes (Other)
  Sender: FDA-Public Use
  Company Number: IT-JNJFOC-20131014316

PATIENT
  Age: 91 Year
  Sex: Male
  Weight: 80 kg

DRUGS (4)
  1. HALDOL [Suspect]
     Indication: SENILE PSYCHOSIS
     Route: 048
     Dates: start: 20130515, end: 20131021
  2. CHLORPROMAZINE HYDROCHLORIDE [Suspect]
     Indication: SENILE PSYCHOSIS
     Route: 048
     Dates: start: 20130905
  3. PANTOPRAZOLE [Concomitant]
     Indication: PRODUCT USED FOR UNKNOWN INDICATION
     Route: 048
     Dates: start: 20070101, end: 20131021
  4. SUPRADYN [Concomitant]
     Indication: PRODUCT USED FOR UNKNOWN INDICATION
     Route: 065

REACTIONS (2)
  - Leukopenia [Recovered/Resolved]
  - Neutropenia [Recovered/Resolved]
